FAERS Safety Report 17649979 (Version 1)
Quarter: 2020Q2

REPORT INFORMATION
  Report Type: Spontaneous
  Country: FR (occurrence: FR)
  Receive Date: 20200409
  Receipt Date: 20200409
  Transmission Date: 20200713
  Serious: Yes (Life-Threatening)
  Sender: FDA-Public Use
  Company Number: FR-TEVA-2020-FR-1220881

PATIENT
  Age: 74 Year
  Sex: Male
  Weight: 80 kg

DRUGS (3)
  1. PREVISCAN 20 MG, COMPRIME SECABLE [Suspect]
     Active Substance: FLUINDIONE
     Indication: POISONING DELIBERATE
     Route: 048
     Dates: start: 20200324, end: 20200324
  2. FLECAINE [Suspect]
     Active Substance: FLECAINIDE
     Indication: POISONING DELIBERATE
     Route: 048
     Dates: start: 20200324, end: 20200324
  3. BISOPROLOL (HEMIFUMARATE DE) [Suspect]
     Active Substance: BISOPROLOL FUMARATE
     Indication: POISONING DELIBERATE
     Route: 048
     Dates: start: 20200324, end: 20200324

REACTIONS (2)
  - Bradycardia [Recovered/Resolved]
  - Poisoning deliberate [Recovered/Resolved]

NARRATIVE: CASE EVENT DATE: 20200324
